FAERS Safety Report 5055836-3 (Version None)
Quarter: 2006Q3

REPORT INFORMATION
  Report Type: 
  Country: None (occurrence: None)
  Receive Date: 20060718
  Receipt Date: 20060718
  Transmission Date: 20061208
  Serious: Yes (Hospitalization)
  Sender: FDA-Public Use
  Company Number: None

PATIENT
  Sex: Female
  Weight: 80 kg

DRUGS (8)
  1. CYCLOPHOSPHAMIDE [Suspect]
     Dosage: 1860 MG
  2. CYTARABINE [Suspect]
     Dosage: 1124 MG
  3. DEXAMETHASONE TAB [Suspect]
     Dosage: 189 MG
  4. DOXORUBICIN HYDROCHLORIDE [Suspect]
     Dosage: 137 MG
  5. METHOTREXATE [Suspect]
     Dosage: 45 MG
  6. PEG-L-ASPARAGINASE (K-H) [Suspect]
     Dosage: 9150 UNIT
  7. THIOGUANINE [Suspect]
     Dosage: 1480 MG
  8. VINCRISTINE SULFATE [Suspect]
     Dosage: 8 MG

REACTIONS (8)
  - ACUTE RESPIRATORY DISTRESS SYNDROME [None]
  - BACTERIAL SEPSIS [None]
  - GENERALISED OEDEMA [None]
  - HAEMODIALYSIS [None]
  - NEUTROPENIA [None]
  - PYREXIA [None]
  - RENAL FAILURE [None]
  - UROSEPSIS [None]
